FAERS Safety Report 7630573-7 (Version None)
Quarter: 2011Q3

REPORT INFORMATION
  Report Type: 
  Country: None (occurrence: None)
  Receive Date: 20110722
  Receipt Date: 20110711
  Transmission Date: 20111222
  Serious: Yes (Disabling)
  Sender: FDA-Public Use
  Company Number: IT-ELI_LILLY_AND_COMPANY-IT201107002573

PATIENT
  Sex: Male

DRUGS (4)
  1. ALIMTA [Suspect]
     Indication: LUNG NEOPLASM MALIGNANT
     Dosage: 1000 MG, PER CYCLE
     Route: 042
     Dates: start: 20110420, end: 20110530
  2. CISPLATIN [Concomitant]
     Indication: LUNG NEOPLASM MALIGNANT
     Dosage: 150 MG, PER CYCLE
     Route: 042
     Dates: start: 20110420, end: 20110530
  3. DOBETIN [Concomitant]
  4. FOLIC ACID [Concomitant]

REACTIONS (1)
  - NEUROSENSORY HYPOACUSIS [None]
